FAERS Safety Report 7955096-7 (Version None)
Quarter: 2011Q4

REPORT INFORMATION
  Report Type: 
  Country: None (occurrence: None)
  Receive Date: 20111202
  Receipt Date: 20111124
  Transmission Date: 20120403
  Serious: Yes (Other)
  Sender: FDA-Public Use
  Company Number: DE-NOVOPROD-336739

PATIENT

DRUGS (1)
  1. GLUCAGEN [Suspect]
     Indication: HYPOGLYCAEMIA

REACTIONS (1)
  - DEVICE LEAKAGE [None]
